FAERS Safety Report 5957711-6 (Version None)
Quarter: 2008Q4

REPORT INFORMATION
  Report Type: 
  Country: None (occurrence: None)
  Receive Date: 20081119
  Receipt Date: 20081106
  Transmission Date: 20090506
  Serious: No
  Sender: FDA-Public Use
  Company Number: JP-ASTRAZENECA-2008AP07486

PATIENT
  Age: 77 Year
  Sex: Female
  Weight: 48 kg

DRUGS (12)
  1. IRESSA [Suspect]
     Indication: NON-SMALL CELL LUNG CANCER
     Route: 048
     Dates: start: 20080612, end: 20080714
  2. CODEINE PHOSPHATE [Concomitant]
     Route: 048
     Dates: start: 20080610
  3. OXYCONTIN [Concomitant]
     Route: 048
     Dates: start: 20080630
  4. BLOPRESS [Concomitant]
     Route: 048
  5. PREDONINE [Concomitant]
     Route: 048
  6. ALOSENN [Concomitant]
     Route: 048
  7. GASCON [Concomitant]
     Route: 048
  8. GASMOTIN [Concomitant]
     Route: 048
  9. ZYRTEC [Concomitant]
     Route: 048
  10. LANSOPRAZOLE [Concomitant]
     Route: 048
  11. MAGNESIUM OXIDE [Concomitant]
     Route: 048
  12. SEREVENT [Concomitant]
     Route: 055

REACTIONS (1)
  - HEPATIC FUNCTION ABNORMAL [None]
